FAERS Safety Report 6937711-X (Version None)
Quarter: 2010Q3

REPORT INFORMATION
  Report Type: 
  Country: None (occurrence: None)
  Receive Date: 20100820
  Receipt Date: 20100820
  Transmission Date: 20110219
  Serious: Yes (Other)
  Sender: FDA-Public Use
  Company Number: None

PATIENT
  Sex: Female
  Weight: 65.318 kg

DRUGS (2)
  1. LEXAPRO [Suspect]
     Indication: ANXIETY
  2. LEXAPRO [Suspect]
     Indication: DEPRESSION

REACTIONS (3)
  - BLOOD CHOLESTEROL INCREASED [None]
  - EMOTIONAL DISORDER [None]
  - WEIGHT INCREASED [None]
